FAERS Safety Report 6494208-1 (Version None)
Quarter: 2009Q4

REPORT INFORMATION
  Report Type: 
  Country: None (occurrence: None)
  Receive Date: 20091214
  Receipt Date: 20090121
  Transmission Date: 20100525
  Serious: Yes (Other)
  Sender: FDA-Public Use
  Company Number: US-BRISTOL-MYERS SQUIBB COMPANY-14478721

PATIENT
  Age: 2 Decade
  Sex: Male

DRUGS (2)
  1. ABILIFY [Suspect]
     Dosage: DOSE REDUCED TO 10 MG, QD.
  2. ZYPREXA [Concomitant]

REACTIONS (1)
  - CONVULSION [None]
